FAERS Safety Report 7071145-5 (Version None)
Quarter: 2010Q4

REPORT INFORMATION
  Report Type: 
  Country: None (occurrence: None)
  Receive Date: 20101029
  Receipt Date: 20101021
  Transmission Date: 20110411
  Serious: No
  Sender: FDA-Public Use
  Company Number: US-PFIZER INC-2010134610

PATIENT

DRUGS (1)
  1. DETROL LA [Suspect]

REACTIONS (1)
  - DRUG EFFECT DELAYED [None]
